FAERS Safety Report 5149606-5 (Version None)
Quarter: 2006Q4

REPORT INFORMATION
  Report Type: 
  Country: None (occurrence: None)
  Receive Date: 20061108
  Receipt Date: 20061025
  Transmission Date: 20070319
  Serious: Yes (Hospitalization)
  Sender: FDA-Public Use
  Company Number: 2006BI015457

PATIENT
  Age: 1 Day
  Sex: Male
  Weight: 3.46 kg

DRUGS (1)
  1. AVONEX [Suspect]
     Indication: MULTIPLE SCLEROSIS
     Dosage: 30 UG;QW;TRPL
     Dates: start: 20000101, end: 20020301

REACTIONS (5)
  - CAESAREAN SECTION [None]
  - COMPLICATION OF DELIVERY [None]
  - DRUG EXPOSURE DURING PREGNANCY [None]
  - OEDEMA NEONATAL [None]
  - PREGNANCY [None]
